FAERS Safety Report 9372785 (Version 4)
Quarter: 2013Q3

REPORT INFORMATION
  Report Type: Spontaneous
  Country: US (occurrence: US)
  Receive Date: 20130627
  Receipt Date: 20130826
  Transmission Date: 20140515
  Serious: No
  Sender: FDA-Public Use
  Company Number: US-PFIZER INC-2013188661

PATIENT
  Age: 52 Year
  Sex: Male
  Weight: 77.1 kg

DRUGS (11)
  1. CAVERJECT [Suspect]
     Indication: ANGIOPATHY
     Dosage: UNK
  2. CAVERJECT [Suspect]
     Indication: POLYMYOSITIS
     Dosage: 40 UG, AS NEEDED
     Dates: start: 20130617
  3. CAVERJECT [Suspect]
     Dosage: 40 UG, ALTERNATE DAY
  4. PREDNISOLONE [Concomitant]
     Indication: MYOSITIS
     Dosage: UNK
  5. METHYLPREDNISOLONE [Concomitant]
     Indication: MYOSITIS
     Dosage: UNK
  6. MAGNESIUM [Concomitant]
     Indication: MYOSITIS
     Dosage: UNK
  7. POTASSIUM [Concomitant]
     Indication: MYOSITIS
     Dosage: UNK
  8. OXYCODONE [Concomitant]
     Dosage: UNK
  9. VIAGRA [Concomitant]
     Dosage: 100 MG, 1X/DAY (QD)
  10. SYNTHROID [Concomitant]
     Dosage: UNK
  11. PREDNISONE [Concomitant]
     Dosage: 20 MG, UNK

REACTIONS (5)
  - Incorrect drug dosage form administered [Unknown]
  - Poor quality drug administered [Unknown]
  - Liquid product physical issue [Unknown]
  - Product solubility abnormal [Unknown]
  - Injection site pain [Unknown]
